FAERS Safety Report 8909262 (Version 1)
Quarter: 2012Q4

REPORT INFORMATION
  Report Type: Spontaneous
  Country: US (occurrence: None)
  Receive Date: 20121114
  Receipt Date: 20121114
  Transmission Date: 20130627
  Serious: No
  Sender: FDA-Public Use
  Company Number: DL2012-0879

PATIENT
  Age: 38 Year
  Sex: Female

DRUGS (3)
  1. MIFEPRISTONE [Suspect]
     Indication: TERMINATION OF PREGNANCY
     Route: 048
     Dates: start: 20120806
  2. MISOPROSTOL [Suspect]
     Route: 002
     Dates: start: 20120807
  3. DOXYCYCLINE [Concomitant]

REACTIONS (4)
  - Abortion incomplete [None]
  - Haemorrhage [None]
  - Anaemia [None]
  - Syncope [None]
